FAERS Safety Report 24452216 (Version 2)
Quarter: 2024Q4

REPORT INFORMATION
  Report Type: Spontaneous
  Country: US (occurrence: US)
  Receive Date: 20241017
  Receipt Date: 20241230
  Transmission Date: 20250115
  Serious: Yes (Death, Other)
  Sender: SUNOVION
  Company Number: US-SMPA-202401-URV-000105AA

PATIENT

DRUGS (1)
  1. GEMTESA [Suspect]
     Active Substance: VIBEGRON
     Indication: Product used for unknown indication
     Dosage: UNK
     Route: 065

REACTIONS (2)
  - Death [Fatal]
  - Confusional state [Not Recovered/Not Resolved]
